FAERS Safety Report 17216156 (Version 2)
Quarter: 2020Q1

REPORT INFORMATION
  Report Type: Spontaneous
  Country: AU (occurrence: AU)
  Receive Date: 20191230
  Receipt Date: 20200106
  Transmission Date: 20200409
  Serious: Yes (Hospitalization, Other)
  Sender: FDA-Public Use
  Company Number: AU-CELGENEUS-AUS-20191002095

PATIENT
  Age: 69 Year
  Sex: Male

DRUGS (11)
  1. AG-221 [Suspect]
     Active Substance: ENASIDENIB
     Indication: ACUTE MYELOID LEUKAEMIA
     Dosage: 100 MILLIGRAM
     Route: 048
     Dates: start: 20190509
  2. CIPROFLOXACIN. [Concomitant]
     Active Substance: CIPROFLOXACIN
     Indication: ESCHERICHIA BACTERAEMIA
     Dosage: 1000 MILLIGRAM
     Route: 048
     Dates: start: 201905, end: 201906
  3. PANTOPRAZOLE [Concomitant]
     Active Substance: PANTOPRAZOLE
     Indication: GASTROOESOPHAGEAL REFLUX DISEASE
     Dosage: 40 MILLIGRAM
     Route: 048
     Dates: start: 201710
  4. VALACICLOVIR [Concomitant]
     Active Substance: VALACYCLOVIR HYDROCHLORIDE
     Indication: PROPHYLAXIS
     Dosage: 500 MILLIGRAM
     Route: 048
     Dates: start: 201710
  5. CYTARABIN [Concomitant]
     Active Substance: CYTARABINE
     Route: 065
     Dates: start: 20190520, end: 20190529
  6. VALACICLOVIR [Concomitant]
     Active Substance: VALACYCLOVIR HYDROCHLORIDE
     Indication: VIRAL INFECTION
  7. CYTARABIN [Concomitant]
     Active Substance: CYTARABINE
     Indication: LUNG DISORDER
     Route: 065
     Dates: start: 20190506, end: 20190510
  8. POSACONAZOLE [Concomitant]
     Active Substance: POSACONAZOLE
     Indication: RESPIRATORY SYMPTOM
     Route: 065
     Dates: start: 201905
  9. VORICONAZOLE. [Concomitant]
     Active Substance: VORICONAZOLE
     Indication: LUNG DISORDER
     Dosage: 700 MILLIGRAM
     Route: 048
     Dates: start: 201905
  10. PIPERACILLIN/TAZOBACTAM [Concomitant]
     Active Substance: PIPERACILLIN SODIUM\TAZOBACTAM SODIUM
     Indication: ESCHERICHIA BACTERAEMIA
     Route: 065
     Dates: start: 201905
  11. POSACONAZOLE [Concomitant]
     Active Substance: POSACONAZOLE
     Indication: ESCHERICHIA BACTERAEMIA

REACTIONS (2)
  - Pneumonia [Recovered/Resolved]
  - Neutropenia [Unknown]

NARRATIVE: CASE EVENT DATE: 201908
